FAERS Safety Report 16660610 (Version 1)
Quarter: 2019Q3

REPORT INFORMATION
  Report Type: Spontaneous
  Country: US (occurrence: US)
  Receive Date: 20190619
  Receipt Date: 20190619
  Transmission Date: 20191004
  Serious: No
  Sender: FDA-Public Use
  Company Number: None

PATIENT
  Age: 56 Year
  Sex: Female
  Weight: 102.06 kg

DRUGS (2)
  1. SIMPONI [Suspect]
     Active Substance: GOLIMUMAB
     Indication: RHEUMATOID ARTHRITIS
     Route: 058
     Dates: start: 201903
  2. SIMPONI [Suspect]
     Active Substance: GOLIMUMAB
     Indication: LIP NEOPLASM MALIGNANT STAGE UNSPECIFIED
     Route: 058
     Dates: start: 201903

REACTIONS (6)
  - Condition aggravated [None]
  - Pain [None]
  - Dry eye [None]
  - Arthralgia [None]
  - Joint swelling [None]
  - Nausea [None]
